FAERS Safety Report 19004487 (Version 5)
Quarter: 2023Q4

REPORT INFORMATION
  Report Type: Other
  Country: HR (occurrence: None)
  Receive Date: 20210312
  Receipt Date: 20231207
  Transmission Date: 20240110
  Serious: Yes (Hospitalization)
  Sender: FDA-Public Use
  Company Number: HR-ROCHE-2782812

PATIENT
  Age: 68 Year
  Sex: Male

DRUGS (12)
  1. ATEZOLIZUMAB [Suspect]
     Active Substance: ATEZOLIZUMAB
     Indication: Lung squamous cell carcinoma metastatic
     Dosage: ON 18/JAN/2021, HE RECEIVED MOST RECENT DOSE OF ATEZOLIZUMAB PRIOR TO SERIOUS ADVERSE EVENT
     Route: 041
     Dates: start: 20201207
  2. OXYGEN [Concomitant]
     Active Substance: OXYGEN
     Indication: Prophylaxis
  3. CIPLAR [Concomitant]
  4. BRALTUS ZONDA [Concomitant]
     Indication: Prophylaxis
  5. FUROSEMIDE [Concomitant]
     Active Substance: FUROSEMIDE
     Indication: Prophylaxis
  6. CORDARONE [Concomitant]
     Active Substance: AMIODARONE HYDROCHLORIDE
  7. BISOPROLOL FUMARATE [Concomitant]
     Active Substance: BISOPROLOL FUMARATE
  8. IPRATROPIJEV BROMID/SALBUTAMOL CIPLA [Concomitant]
     Indication: Prophylaxis
  9. GEMCITABINE [Concomitant]
     Active Substance: GEMCITABINE
     Indication: Neoplasm malignant
  10. CISPLATIN [Concomitant]
     Active Substance: CISPLATIN
     Indication: Neoplasm malignant
  11. GEMCITABINE [Concomitant]
     Active Substance: GEMCITABINE
     Indication: Neoplasm malignant
  12. CISPLATIN [Concomitant]
     Active Substance: CISPLATIN
     Indication: Neoplasm malignant

REACTIONS (3)
  - Pericarditis [Not Recovered/Not Resolved]
  - Pulmonary embolism [Not Recovered/Not Resolved]
  - Pneumonitis [Not Recovered/Not Resolved]

NARRATIVE: CASE EVENT DATE: 20210208
